FAERS Safety Report 24849023 (Version 1)
Quarter: 2025Q1

REPORT INFORMATION
  Report Type: Other
  Country: CA (occurrence: CA)
  Receive Date: 20250116
  Receipt Date: 20250116
  Transmission Date: 20250409
  Serious: Yes (Hospitalization, Other)
  Sender: PFIZER
  Company Number: CA-PFIZER INC-202500008509

PATIENT
  Age: 53 Year
  Sex: Female

DRUGS (8)
  1. LORAZEPAM [Suspect]
     Active Substance: LORAZEPAM
     Indication: Schizoaffective disorder
     Dosage: 1 MG, 3X/DAY
     Route: 065
  2. CLOZAPINE [Suspect]
     Active Substance: CLOZAPINE
     Indication: Schizoaffective disorder
     Route: 065
  3. CLOZAPINE [Suspect]
     Active Substance: CLOZAPINE
     Route: 065
  4. CLOZAPINE [Suspect]
     Active Substance: CLOZAPINE
     Route: 065
  5. CLOZAPINE [Suspect]
     Active Substance: CLOZAPINE
     Route: 065
  6. PERPHENAZINE [Suspect]
     Active Substance: PERPHENAZINE
     Indication: Schizoaffective disorder
     Route: 065
  7. QUETIAPINE FUMARATE [Suspect]
     Active Substance: QUETIAPINE FUMARATE
     Indication: Schizoaffective disorder
     Route: 065
  8. SERTRALINE HYDROCHLORIDE [Suspect]
     Active Substance: SERTRALINE HYDROCHLORIDE
     Indication: Schizoaffective disorder
     Dosage: 125 MG, 1X/DAY
     Route: 065

REACTIONS (8)
  - Dyskinesia [Recovering/Resolving]
  - Dystonia [Recovering/Resolving]
  - Head titubation [Recovering/Resolving]
  - Hyponatraemia [Recovering/Resolving]
  - Parkinsonism [Recovering/Resolving]
  - Polydipsia [Recovering/Resolving]
  - Seizure [Recovering/Resolving]
  - Tremor [Recovering/Resolving]
